FAERS Safety Report 13359802 (Version 2)
Quarter: 2017Q2

REPORT INFORMATION
  Report Type: Spontaneous
  Country: FR (occurrence: FR)
  Receive Date: 20170322
  Receipt Date: 20170418
  Transmission Date: 20170830
  Serious: Yes (Other)
  Sender: FDA-Public Use
  Company Number: FR-PFIZER INC-2017114803

PATIENT
  Age: 44 Year
  Sex: Female

DRUGS (14)
  1. TARDYFERON B9 /00023601/ [Concomitant]
     Active Substance: FERROUS SULFATE\FOLIC ACID
  2. TRACLEER [Suspect]
     Active Substance: BOSENTAN
     Dosage: 125 MG, 1X/DAY
     Route: 048
     Dates: start: 20170130, end: 20170223
  3. KARDEGIC [Concomitant]
     Active Substance: ASPIRIN LYSINE
  4. CAPTOPRIL. [Suspect]
     Active Substance: CAPTOPRIL
     Dosage: 25 MG, 2X/DAY
     Route: 048
     Dates: start: 20170120, end: 20170223
  5. ADEPAL [Suspect]
     Active Substance: ETHINYL ESTRADIOL\LEVONORGESTREL
     Indication: EPILEPSY
     Dosage: UNK
     Route: 048
     Dates: start: 20170124, end: 20170223
  6. TAHOR [Concomitant]
     Active Substance: ATORVASTATIN CALCIUM
  7. OXYCONTIN [Concomitant]
     Active Substance: OXYCODONE HYDROCHLORIDE
     Dosage: UNK
     Dates: start: 20170120
  8. AMLODIPINE [Concomitant]
     Active Substance: AMLODIPINE BESYLATE
  9. KEPPRA [Suspect]
     Active Substance: LEVETIRACETAM
     Indication: EPILEPSY
     Dosage: UNK
     Route: 048
     Dates: start: 20170124, end: 20170223
  10. ILOMEDINE [Suspect]
     Active Substance: ILOPROST TROMETHAMINE
     Indication: RAYNAUD^S PHENOMENON
     Dosage: 1 DF, DAILY
     Route: 042
     Dates: start: 20170124, end: 20170129
  11. LAMICTAL [Suspect]
     Active Substance: LAMOTRIGINE
     Indication: EPILEPSY
     Dosage: UNK
     Route: 048
     Dates: start: 20170124, end: 20170223
  12. ESOMEPRAZOLE [Concomitant]
     Active Substance: ESOMEPRAZOLE
  13. SPECIAFOLDINE [Concomitant]
     Active Substance: FOLIC ACID
  14. PARACETAMOL [Concomitant]
     Active Substance: ACETAMINOPHEN

REACTIONS (4)
  - Periorbital oedema [Recovered/Resolved]
  - Drug prescribing error [Unknown]
  - Cheilitis [Recovered/Resolved]
  - Rash erythematous [Recovering/Resolving]

NARRATIVE: CASE EVENT DATE: 201701
